FAERS Safety Report 17231711 (Version 2)
Quarter: 2022Q4

REPORT INFORMATION
  Report Type: Spontaneous
  Country: US (occurrence: US)
  Receive Date: 20200103
  Receipt Date: 20221007
  Transmission Date: 20230112
  Serious: No
  Sender: FDA-Public Use
  Company Number: US-PFIZER INC-2020002184

PATIENT
  Age: 70 Year
  Sex: Male

DRUGS (2)
  1. XELJANZ XR [Suspect]
     Active Substance: TOFACITINIB CITRATE
     Dosage: 11 MG, UNK
  2. PRIMIDONE [Concomitant]
     Active Substance: PRIMIDONE
     Dosage: UNK

REACTIONS (1)
  - Malaise [Unknown]
